FAERS Safety Report 15630386 (Version 7)
Quarter: 2019Q2

REPORT INFORMATION
  Report Type: Spontaneous
  Country: BR (occurrence: BR)
  Receive Date: 20181118
  Receipt Date: 20190405
  Transmission Date: 20190711
  Serious: Yes (Hospitalization, Other)
  Sender: FDA-Public Use
  Company Number: BR-ASTRAZENECA-2018SF49727

PATIENT
  Age: 65 Year
  Sex: Female

DRUGS (4)
  1. FASENRA [Suspect]
     Active Substance: BENRALIZUMAB
     Route: 058
     Dates: start: 20181015
  2. MOTILIUM [Concomitant]
     Active Substance: DOMPERIDONE
  3. FOSTAIR [Concomitant]
     Active Substance: BECLOMETHASONE\FORMOTEROL
  4. SPIRIVA [Concomitant]
     Active Substance: TIOTROPIUM BROMIDE MONOHYDRATE

REACTIONS (9)
  - Strangulated hernia [Unknown]
  - Asthmatic crisis [Recovered/Resolved]
  - Ill-defined disorder [Recovered/Resolved]
  - Fatigue [Recovered/Resolved]
  - Increased bronchial secretion [Recovered/Resolved]
  - Abdominal hernia [Recovering/Resolving]
  - Dizziness [Recovered/Resolved]
  - Lung disorder [Unknown]
  - Bronchospasm [Recovered/Resolved]

NARRATIVE: CASE EVENT DATE: 2018
